FAERS Safety Report 4916980-1 (Version None)
Quarter: 2006Q1

REPORT INFORMATION
  Report Type: 
  Country: None (occurrence: None)
  Receive Date: 20060216
  Receipt Date: 20060216
  Transmission Date: 20060701
  Serious: Yes (Hospitalization)
  Sender: FDA-Public Use
  Company Number: None

PATIENT
  Age: 69 Year
  Sex: Female
  Weight: 59.4212 kg

DRUGS (1)
  1. KETEK [Suspect]
     Indication: INFECTION
     Dates: start: 20051201

REACTIONS (2)
  - AUTOIMMUNE HEPATITIS [None]
  - HEPATIC FUNCTION ABNORMAL [None]
